FAERS Safety Report 6451579-X (Version None)
Quarter: 2009Q4

REPORT INFORMATION
  Report Type: 
  Country: None (occurrence: None)
  Receive Date: 20091123
  Receipt Date: 20091112
  Transmission Date: 20100525
  Serious: Yes (Other)
  Sender: FDA-Public Use
  Company Number: DE-PFIZER INC-2009281385

PATIENT
  Sex: Male
  Weight: 67 kg

DRUGS (4)
  1. LYRICA [Suspect]
     Indication: GENERALISED ANXIETY DISORDER
     Dosage: 300 MG, 2X/DAY
     Route: 048
     Dates: start: 20080415
  2. LYRICA [Suspect]
     Indication: PERSONALITY DISORDER
     Dosage: 7 X 300 MG/DAY
     Route: 048
  3. LYRICA [Suspect]
     Dosage: 150 MG, 4X/DAY
     Route: 048
  4. LYRICA [Suspect]
     Dosage: 225 MG, 4X/DAY
     Route: 048
     Dates: end: 20090414

REACTIONS (2)
  - DRUG TOLERANCE [None]
  - INTENTIONAL DRUG MISUSE [None]
